FAERS Safety Report 13643162 (Version 1)
Quarter: 2017Q2

REPORT INFORMATION
  Report Type: Spontaneous
  Country: US (occurrence: US)
  Receive Date: 20170612
  Receipt Date: 20170612
  Transmission Date: 20170830
  Serious: Yes (Hospitalization)
  Sender: FDA-Public Use
  Company Number: None

PATIENT
  Age: 66 Year
  Sex: Male
  Weight: 90.3 kg

DRUGS (1)
  1. THIOTEPA. [Suspect]
     Active Substance: THIOTEPA
     Dates: end: 20170510

REACTIONS (3)
  - Syncope [None]
  - Head injury [None]
  - Loss of consciousness [None]

NARRATIVE: CASE EVENT DATE: 20170608
